FAERS Safety Report 15321436 (Version 1)
Quarter: 2018Q3

REPORT INFORMATION
  Report Type: Spontaneous
  Country: US (occurrence: US)
  Receive Date: 20180821
  Receipt Date: 20180821
  Transmission Date: 20181010
  Serious: No
  Sender: FDA-Public Use
  Company Number: None

PATIENT
  Age: 62 Year
  Sex: Female

DRUGS (3)
  1. ENOXAPARIN [Concomitant]
     Active Substance: ENOXAPARIN
  2. TEMOZOLOMIDE CAP [Suspect]
     Active Substance: TEMOZOLOMIDE
  3. TEMOZOLOMIDE CAP [Suspect]
     Active Substance: TEMOZOLOMIDE

REACTIONS (3)
  - Eye pruritus [None]
  - Deep vein thrombosis [None]
  - Weight increased [None]

NARRATIVE: CASE EVENT DATE: 20180816
